FAERS Safety Report 25742570 (Version 1)
Quarter: 2025Q3

REPORT INFORMATION
  Report Type: Spontaneous
  Country: US (occurrence: US)
  Receive Date: 20250829
  Receipt Date: 20250829
  Transmission Date: 20251020
  Serious: Yes (Hospitalization, Other)
  Sender: GE HEALTHCARE
  Company Number: US-GE HEALTHCARE-2025CSU011737

PATIENT
  Age: 72 Year
  Sex: Female

DRUGS (5)
  1. VISIPAQUE [Suspect]
     Active Substance: IODIXANOL
     Indication: Angiocardiogram
     Route: 065
  2. PREDNISONE [Concomitant]
     Active Substance: PREDNISONE
     Indication: Premedication
  3. PREDNISONE [Concomitant]
     Active Substance: PREDNISONE
     Route: 048
  4. PREDNISONE [Concomitant]
     Active Substance: PREDNISONE
     Route: 048
  5. DIPHENHYDRAMINE [Concomitant]
     Active Substance: DIPHENHYDRAMINE
     Indication: Premedication
     Route: 048

REACTIONS (1)
  - Anaphylactic reaction [Recovered/Resolved]
